FAERS Safety Report 5023156-9 (Version None)
Quarter: 2006Q2

REPORT INFORMATION
  Report Type: 
  Country: None (occurrence: None)
  Receive Date: 20060428
  Receipt Date: 20060302
  Transmission Date: 20061013
  Serious: No
  Sender: FDA-Public Use
  Company Number: 012135

PATIENT
  Age: 75 Year
  Sex: Male

DRUGS (1)
  1. PRIALT [Suspect]
     Indication: SPINAL DISORDER
     Dosage: 0.1 UG, ONCE/HOUR, INTRATHECAL
     Route: 037
     Dates: start: 20060213

REACTIONS (5)
  - DEHYDRATION [None]
  - PRURITUS [None]
  - RASH [None]
  - SKIN ATROPHY [None]
  - SKIN HAEMORRHAGE [None]
